FAERS Safety Report 24594603 (Version 2)
Quarter: 2024Q4

REPORT INFORMATION
  Report Type: Spontaneous
  Country: US (occurrence: US)
  Receive Date: 20241108
  Receipt Date: 20241216
  Transmission Date: 20250115
  Serious: Yes (Hospitalization)
  Sender: SANDOZ
  Company Number: US-SANDOZ-SDZ2024US092352

PATIENT
  Age: 62 Year
  Sex: Male
  Weight: 82.222 kg

DRUGS (13)
  1. INDOMETHACIN [Suspect]
     Active Substance: INDOMETHACIN
     Indication: Pyrexia
     Dosage: 25 MG, QD
     Route: 065
     Dates: start: 20240906, end: 20240911
  2. SIGVOTATUG VEDOTIN [Suspect]
     Active Substance: SIGVOTATUG VEDOTIN
     Indication: Non-small cell lung cancer
     Dosage: 10 MG/ML, Q2W
     Route: 065
     Dates: start: 20240827, end: 20240910
  3. CETIRIZINE HYDROCHLORIDE [Concomitant]
     Active Substance: CETIRIZINE HYDROCHLORIDE
     Indication: Pruritus
     Dosage: UNK
     Route: 048
     Dates: start: 20240525
  4. DIAZEPAM [Concomitant]
     Active Substance: DIAZEPAM
     Indication: Insomnia
     Dosage: UNK
     Route: 048
     Dates: start: 19980525
  5. GABAPENTIN [Concomitant]
     Active Substance: GABAPENTIN
     Indication: Peripheral sensory neuropathy
     Dosage: UNK
     Route: 048
     Dates: start: 20240525
  6. HYDROXYZINE HYDROCHLORIDE [Concomitant]
     Active Substance: HYDROXYZINE HYDROCHLORIDE
     Indication: Pruritus
     Dosage: UNK
     Route: 048
     Dates: start: 20240525
  7. LEVOTHYROXINE [Concomitant]
     Active Substance: LEVOTHYROXINE
     Indication: Hypothyroidism
     Dosage: UNK
     Route: 048
     Dates: start: 20240525
  8. LORAZEPAM [Concomitant]
     Active Substance: LORAZEPAM
     Indication: Insomnia
     Dosage: UNK
     Route: 048
     Dates: start: 20010525
  9. LOSARTAN POTASSIUM [Concomitant]
     Active Substance: LOSARTAN POTASSIUM
     Indication: Hypertension
     Dosage: UNK
     Route: 048
     Dates: start: 20010525
  10. POLYETHYLENE GLYCOLS [Concomitant]
     Active Substance: POLYETHYLENE GLYCOLS
     Indication: Constipation prophylaxis
     Dosage: UNK
     Route: 048
     Dates: start: 20240827
  11. OMEPRAZOLE [Concomitant]
     Active Substance: OMEPRAZOLE
     Indication: Dyspepsia
     Dosage: UNK
     Route: 065
     Dates: start: 20240903
  12. ACETAMINOPHEN\TRAMADOL [Concomitant]
     Active Substance: ACETAMINOPHEN\TRAMADOL
     Indication: Arthralgia
     Dosage: UNK
     Route: 048
     Dates: start: 20240525
  13. CYANOCOBALAMIN\FOLIC ACID [Concomitant]
     Active Substance: CYANOCOBALAMIN\FOLIC ACID
     Indication: Prophylaxis
     Dosage: UNK
     Route: 065
     Dates: start: 20240827

REACTIONS (1)
  - Blood creatinine increased [Unknown]

NARRATIVE: CASE EVENT DATE: 20240910
